FAERS Safety Report 6464215-3 (Version None)
Quarter: 2009Q4

REPORT INFORMATION
  Report Type: 
  Country: None (occurrence: None)
  Receive Date: 20091201
  Receipt Date: 20091123
  Transmission Date: 20100525
  Serious: Yes (Disabling)
  Sender: FDA-Public Use
  Company Number: PHHY2009IT51474

PATIENT
  Sex: Female

DRUGS (3)
  1. AREDIA [Suspect]
     Indication: METASTASES TO BONE
     Dosage: 90 MG/10 ML, CYCLIC
     Route: 042
     Dates: start: 20000801, end: 20020301
  2. ZOMETA [Suspect]
     Indication: METASTASES TO BONE
     Dosage: 4 MG, QMO
     Dates: start: 20020301, end: 20041101
  3. ARIMIDEX [Concomitant]

REACTIONS (3)
  - BONE OPERATION [None]
  - OSTEONECROSIS [None]
  - SEQUESTRECTOMY [None]
